FAERS Safety Report 13649084 (Version 1)
Quarter: 2017Q2

REPORT INFORMATION
  Report Type: Spontaneous
  Country: US (occurrence: US)
  Receive Date: 20170613
  Receipt Date: 20170613
  Transmission Date: 20170830
  Serious: No
  Sender: FDA-Public Use
  Company Number: US-ELI_LILLY_AND_COMPANY-US201706003328

PATIENT
  Sex: Female

DRUGS (1)
  1. BASAGLAR [Suspect]
     Active Substance: INSULIN GLARGINE
     Indication: PRODUCT USED FOR UNKNOWN INDICATION
     Dosage: UNK, UNKNOWN
     Route: 065

REACTIONS (5)
  - Dyspnoea [Recovering/Resolving]
  - Back pain [Recovering/Resolving]
  - Neck pain [Recovering/Resolving]
  - Vulvovaginal pain [Recovering/Resolving]
  - Headache [Recovering/Resolving]
